FAERS Safety Report 7441985-9 (Version None)
Quarter: 2011Q2

REPORT INFORMATION
  Report Type: 
  Country: None (occurrence: None)
  Receive Date: 20110428
  Receipt Date: 20101102
  Transmission Date: 20111010
  Serious: No
  Sender: FDA-Public Use
  Company Number: US-ASTRAZENECA-2010SE28303

PATIENT
  Age: 53 Year
  Sex: Female

DRUGS (1)
  1. ZOMIG [Suspect]
     Route: 045

REACTIONS (3)
  - PAIN [None]
  - HEADACHE [None]
  - DRUG DOSE OMISSION [None]
